FAERS Safety Report 6527367-2 (Version None)
Quarter: 2009Q4

REPORT INFORMATION
  Report Type: 
  Country: None (occurrence: None)
  Receive Date: 20091230
  Receipt Date: 20091230
  Transmission Date: 20100525
  Serious: No
  Sender: FDA-Public Use
  Company Number: None

PATIENT
  Age: 58 Year
  Sex: Female
  Weight: 59.4212 kg

DRUGS (8)
  1. COLD REMEDY RAPID MELTS WITH VITAMIN C + ECHINACEA [Suspect]
     Dosage: Q3 HOURS - 2 DAYS
     Dates: start: 20091215, end: 20091217
  2. SYNTHROID [Concomitant]
  3. LISINOPRIL [Concomitant]
  4. NEXIUM [Concomitant]
  5. KLONOPIN [Concomitant]
  6. ASPIRIN [Concomitant]
  7. CALCIUM [Concomitant]
  8. VITAMIN D [Concomitant]

REACTIONS (1)
  - AGEUSIA [None]
